FAERS Safety Report 17392759 (Version 2)
Quarter: 2020Q1

REPORT INFORMATION
  Report Type: Other
  Country: US (occurrence: US)
  Receive Date: 20200207
  Receipt Date: 20200305
  Transmission Date: 20200409
  Serious: Yes (Hospitalization, Other)
  Sender: FDA-Public Use
  Company Number: US-AMAG PHARMACEUTICALS, INC.-AMAG202000259

PATIENT
  Age: 27 Year
  Sex: Female

DRUGS (4)
  1. BONJESTA [Concomitant]
     Active Substance: DOXYLAMINE SUCCINATE\PYRIDOXINE HYDROCHLORIDE
     Indication: NAUSEA
     Dates: start: 20190909, end: 20191116
  2. VISTARIL [Concomitant]
     Active Substance: HYDROXYZINE PAMOATE
     Indication: ANXIETY
     Dosage: AGAIN  FROM 09SEP2019 TO 16SEP2019
     Dates: start: 20190812
  3. MAKENA [Suspect]
     Active Substance: HYDROXYPROGESTERONE CAPROATE
     Indication: PREMATURE DELIVERY
     Route: 058
     Dates: start: 20190917, end: 20200102
  4. NITROFURANTOIN. [Concomitant]
     Active Substance: NITROFURANTOIN
     Indication: URINARY TRACT INFECTION
     Dosage: AGAIN  FROM 09SEP2019 TO 16SEP2019
     Dates: start: 20190715, end: 20190722

REACTIONS (4)
  - Dyspepsia [Unknown]
  - Pre-eclampsia [Recovered/Resolved]
  - Premature delivery [Recovered/Resolved]
  - Product administration error [Unknown]

NARRATIVE: CASE EVENT DATE: 20191030
